FAERS Safety Report 7060274-8 (Version None)
Quarter: 2010Q4

REPORT INFORMATION
  Report Type: 
  Country: None (occurrence: None)
  Receive Date: 20101025
  Receipt Date: 20101020
  Transmission Date: 20110411
  Serious: Yes (Other)
  Sender: FDA-Public Use
  Company Number: PHHY2010US70770

PATIENT

DRUGS (2)
  1. COMTAN [Suspect]
  2. SINEMET [Interacting]

REACTIONS (1)
  - HALLUCINATION [None]
